FAERS Safety Report 4839690-8 (Version None)
Quarter: 2005Q4

REPORT INFORMATION
  Report Type: 
  Country: None (occurrence: None)
  Receive Date: 20051125
  Receipt Date: 20051111
  Transmission Date: 20060501
  Serious: Yes (Death, Hospitalization)
  Sender: FDA-Public Use
  Company Number: 2005P1000559

PATIENT
  Age: 72 Year

DRUGS (2)
  1. RETEPLASE (RETEPLASE) [Suspect]
     Indication: ACUTE MYOCARDIAL INFARCTION
     Dosage: IV
     Route: 042
     Dates: start: 20050430, end: 20050430
  2. ABCIXIMAB (ABCIXIMAB) [Suspect]
     Indication: ACUTE MYOCARDIAL INFARCTION
     Dosage: IV
     Route: 042
     Dates: start: 20050430, end: 20050430

REACTIONS (8)
  - BLOOD PRESSURE INCREASED [None]
  - CARDIAC ARREST [None]
  - CEREBRAL HAEMORRHAGE [None]
  - COAGULATION TIME PROLONGED [None]
  - HAEMORRHAGIC INFARCTION [None]
  - HEMIPARESIS [None]
  - HYPOTENSION [None]
  - POST PROCEDURAL HAEMORRHAGE [None]
